FAERS Safety Report 18757642 (Version 1)
Quarter: 2021Q1

REPORT INFORMATION
  Report Type: Report from Study
  Country: US (occurrence: US)
  Receive Date: 20210119
  Receipt Date: 20210119
  Transmission Date: 20210419
  Serious: Yes (Hospitalization, Other)
  Sender: FDA-Public Use
  Company Number: US-SHIRE-US202010463

PATIENT
  Age: 40 Year
  Sex: Female

DRUGS (1)
  1. HUMAN IMMUNOGLOBULIN; HYALURONIDASE [Suspect]
     Active Substance: HUMAN IMMUNOGLOBULIN G\HYALURONIDASE RECOMBINANT HUMAN
     Indication: IMMUNODEFICIENCY COMMON VARIABLE
     Route: 065

REACTIONS (10)
  - Cerebral cyst [Unknown]
  - General physical health deterioration [Unknown]
  - Loss of consciousness [Unknown]
  - Epilepsy [Unknown]
  - Thrombosis [Unknown]
  - Carbon dioxide increased [Unknown]
  - Pneumonia [Unknown]
  - Viral infection [Unknown]
  - Influenza [Unknown]
  - Depression [Unknown]

NARRATIVE: CASE EVENT DATE: 201910
